FAERS Safety Report 24370318 (Version 1)
Quarter: 2024Q3

REPORT INFORMATION
  Report Type: Spontaneous
  Country: MA (occurrence: MA)
  Receive Date: 20240927
  Receipt Date: 20240927
  Transmission Date: 20241017
  Serious: Yes (Other)
  Sender: EMD SERONO INC
  Company Number: MA-Merck Healthcare KGaA-2024050541

PATIENT
  Age: 35 Year
  Sex: Female

DRUGS (1)
  1. MAVENCLAD [Suspect]
     Active Substance: CLADRIBINE
     Indication: Multiple sclerosis
     Dosage: WEEK ONE THERAPY
     Dates: start: 202408

REACTIONS (3)
  - Transaminases increased [Unknown]
  - Contusion [Recovered/Resolved]
  - Rash pruritic [Not Recovered/Not Resolved]
